FAERS Safety Report 8101022 (Version 5)
Quarter: 2013Q2

REPORT INFORMATION
  Report Type: Report from Study
  Country: US (occurrence: US)
  Receive Date: 20110822
  Receipt Date: 20130508
  Transmission Date: 20140414
  Serious: Yes (Life-Threatening, Other)
  Sender: FDA-Public Use
  Company Number: US-ABBOTT-11P-163-0847736-00

PATIENT
  Age: 48 Year
  Sex: Male
  Weight: 105.78 kg

DRUGS (10)
  1. HUMIRA [Suspect]
     Indication: PSORIASIS
     Route: 058
     Dates: start: 20110120, end: 20110504
  2. COMMERCIAL HUMIRA [Concomitant]
     Indication: PRODUCT USED FOR UNKNOWN INDICATION
     Route: 058
     Dates: start: 20101215
  3. LEVAQUIN [Concomitant]
     Indication: CHEMOTHERAPY
     Dates: start: 20110810
  4. LEVAQUIN [Concomitant]
     Indication: PROPHYLAXIS
  5. CLOBEX [Concomitant]
     Indication: PSORIASIS
     Dates: start: 20101116
  6. VECTICAL [Concomitant]
     Indication: PSORIASIS
     Dates: start: 20101116
  7. CELEBREX [Concomitant]
     Indication: PSORIASIS
     Dates: start: 20101116
  8. LIPITOR [Concomitant]
     Indication: HYPERLIPIDAEMIA
     Dates: start: 2009
  9. BENAZEPRIL [Concomitant]
     Indication: HYPERTENSION
     Dates: start: 2009
  10. GLUCOPHAGE [Concomitant]
     Indication: DIABETES MELLITUS
     Dates: start: 2009

REACTIONS (1)
  - Plasma cell myeloma [Not Recovered/Not Resolved]
